FAERS Safety Report 21811854 (Version 2)
Quarter: 2023Q1

REPORT INFORMATION
  Report Type: Spontaneous
  Country: ES (occurrence: ES)
  Receive Date: 20230103
  Receipt Date: 20230119
  Transmission Date: 20230417
  Serious: Yes (Other)
  Sender: FDA-Public Use
  Company Number: ES-ELI_LILLY_AND_COMPANY-ES202211007052

PATIENT
  Age: 60 Year
  Sex: Female

DRUGS (3)
  1. LOPERAMIDE HYDROCHLORIDE [Suspect]
     Active Substance: LOPERAMIDE HYDROCHLORIDE
     Indication: Diarrhoea
     Dosage: UNK UNK, UNKNOWN
     Route: 065
  2. ABEMACICLIB [Suspect]
     Active Substance: ABEMACICLIB
     Indication: Breast cancer metastatic
     Dosage: 150 MG, BID
     Route: 048
     Dates: start: 201911
  3. ABEMACICLIB [Suspect]
     Active Substance: ABEMACICLIB
     Indication: Metastases to pleura

REACTIONS (14)
  - Anal fissure haemorrhage [Recovering/Resolving]
  - Diarrhoea [Recovered/Resolved]
  - Insomnia [Unknown]
  - Taste disorder [Unknown]
  - Blood test abnormal [Unknown]
  - Bowel movement irregularity [Unknown]
  - Discomfort [Unknown]
  - Asthenia [Unknown]
  - Anaemia [Unknown]
  - Peripheral swelling [Unknown]
  - Weight decreased [Unknown]
  - Fatigue [Unknown]
  - Constipation [Not Recovered/Not Resolved]
  - Dizziness [Unknown]

NARRATIVE: CASE EVENT DATE: 20200101
